FAERS Safety Report 24214672 (Version 1)
Quarter: 2024Q3

REPORT INFORMATION
  Report Type: Spontaneous
  Country: US (occurrence: US)
  Receive Date: 20240815
  Receipt Date: 20240815
  Transmission Date: 20241016
  Serious: No
  Sender: RVL PHARMACEUTICALS
  Company Number: US-RVL_Pharmaceuticals-USA-POI1255202300313

PATIENT
  Sex: Female

DRUGS (1)
  1. UPNEEQ [Suspect]
     Active Substance: OXYMETAZOLINE HYDROCHLORIDE
     Indication: Product used for unknown indication
     Dosage: UNKNOWN
     Route: 047
     Dates: start: 202311, end: 202311

REACTIONS (5)
  - Ocular hyperaemia [Recovered/Resolved]
  - Eye swelling [Recovered/Resolved]
  - Headache [Recovered/Resolved]
  - Eye irritation [Recovered/Resolved]
  - Adverse event [Recovered/Resolved]

NARRATIVE: CASE EVENT DATE: 20231101
